FAERS Safety Report 7679548-2 (Version None)
Quarter: 2011Q3

REPORT INFORMATION
  Report Type: 
  Country: None (occurrence: None)
  Receive Date: 20110812
  Receipt Date: 20110808
  Transmission Date: 20111222
  Serious: Yes (Hospitalization)
  Sender: FDA-Public Use
  Company Number: IT-BRISTOL-MYERS SQUIBB COMPANY-15952781

PATIENT
  Age: 39 Year
  Sex: Female

DRUGS (3)
  1. NORVIR [Concomitant]
     Indication: HIV INFECTION
     Dosage: 1DF:100 UNITS NOS
     Route: 048
     Dates: start: 20110624, end: 20110805
  2. REYATAZ [Suspect]
     Indication: HIV INFECTION
     Dosage: 1 DF = 1 UNIT
     Route: 048
     Dates: start: 20110624, end: 20110805
  3. TRUVADA [Suspect]
     Indication: HIV INFECTION
     Route: 048
     Dates: start: 20071221, end: 20110720

REACTIONS (2)
  - ABORTION SPONTANEOUS [None]
  - PREGNANCY [None]
